FAERS Safety Report 4622258-6 (Version None)
Quarter: 2005Q1

REPORT INFORMATION
  Report Type: 
  Country: None (occurrence: None)
  Receive Date: 20050324
  Receipt Date: 20050324
  Transmission Date: 20050727
  Serious: No
  Sender: FDA-Public Use
  Company Number: None

PATIENT
  Sex: Male
  Weight: 122 kg

DRUGS (3)
  1. ETOPOSIDE [Suspect]
     Dosage: 120 MG/M2 IV PER DAY ON DAYS 2 OR 3.
     Route: 042
     Dates: start: 20050124
  2. CISPLATIN [Suspect]
     Dosage: DAYS 44 AND 45
  3. RADIATION THERAPY [Suspect]
     Dosage: LARGE FIELD 28.8:  1.8 GY PER FRACTION, 5 DAYS/WK FOR 16 FRACTIONS; ON DAYS 23-26 BID.

REACTIONS (12)
  - BALANCE DISORDER [None]
  - DIZZINESS [None]
  - ELECTROLYTE IMBALANCE [None]
  - HYPONATRAEMIA [None]
  - HYPOVOLAEMIA [None]
  - MEMORY IMPAIRMENT [None]
  - NAUSEA [None]
  - NEPHROPATHY TOXIC [None]
  - ORAL INTAKE REDUCED [None]
  - RENAL FAILURE ACUTE [None]
  - UPPER RESPIRATORY TRACT INFECTION [None]
  - VOMITING [None]
